FAERS Safety Report 13741986 (Version 1)
Quarter: 2017Q3

REPORT INFORMATION
  Report Type: Spontaneous
  Country: CA (occurrence: CA)
  Receive Date: 20170711
  Receipt Date: 20170711
  Transmission Date: 20171127
  Serious: Yes (Other)
  Sender: FDA-Public Use
  Company Number: CA-APOTEX-2017AP013892

PATIENT
  Age: 11 Year

DRUGS (2)
  1. APO-GABAPENTIN [Suspect]
     Active Substance: GABAPENTIN
     Indication: MUSCLE TWITCHING
     Dosage: 100 MG, BID
     Route: 048
     Dates: start: 20170626, end: 20170627
  2. APO-GABAPENTIN [Suspect]
     Active Substance: GABAPENTIN
     Indication: PAIN
     Dosage: 100 MG, QD
     Route: 048
     Dates: start: 20170623, end: 20170626

REACTIONS (4)
  - Pruritus generalised [Recovered/Resolved]
  - Hypersensitivity [Recovered/Resolved]
  - Scratch [Recovered/Resolved]
  - Off label use [Unknown]

NARRATIVE: CASE EVENT DATE: 20170626
